FAERS Safety Report 16626649 (Version 1)
Quarter: 2019Q3

REPORT INFORMATION
  Report Type: Report from Study
  Country: US (occurrence: US)
  Receive Date: 20190724
  Receipt Date: 20190724
  Transmission Date: 20191004
  Serious: Yes (Hospitalization, Other)
  Sender: FDA-Public Use
  Company Number: US-ALEXION PHARMACEUTICALS INC.-A201911072

PATIENT
  Sex: Male

DRUGS (1)
  1. ULTOMIRIS [Suspect]
     Active Substance: RAVULIZUMAB-CWVZ
     Indication: PAROXYSMAL NOCTURNAL HAEMOGLOBINURIA
     Dosage: UNK
     Route: 065

REACTIONS (11)
  - Hemiplegia [Recovered/Resolved]
  - Haematocrit decreased [Unknown]
  - Craniocerebral injury [Unknown]
  - Anaemia [Unknown]
  - Fatigue [Unknown]
  - Somnolence [Unknown]
  - Seizure [Unknown]
  - Infected cyst [Unknown]
  - Haemoglobin decreased [Unknown]
  - Physical assault [Unknown]
  - White blood cell count decreased [Unknown]

NARRATIVE: CASE EVENT DATE: 20190403
